FAERS Safety Report 23372620 (Version 3)
Quarter: 2024Q1

REPORT INFORMATION
  Report Type: Spontaneous
  Country: CZ (occurrence: CZ)
  Receive Date: 20240105
  Receipt Date: 20240213
  Transmission Date: 20240410
  Serious: Yes (Life-Threatening, Hospitalization, Other)
  Sender: FDA-Public Use
  Company Number: CZ-CELLTRION HEALTHCARE HUNGARY KFT-2023CZ016853

PATIENT
  Age: 52 Year
  Sex: Male

DRUGS (24)
  1. BENDAMUSTINE [Suspect]
     Active Substance: BENDAMUSTINE
     Indication: Follicular lymphoma
     Dosage: 6 CYCLES OF R-CHOP
     Route: 065
  2. CISPLATIN [Suspect]
     Active Substance: CISPLATIN
     Indication: Follicular lymphoma
     Dosage: ICE CHEMOTHERAPY; RESCUE TREATMENT
     Route: 065
  3. CISPLATIN [Suspect]
     Active Substance: CISPLATIN
     Dosage: FOUR MORE CYCLES OF ETOPOSIDE WITH DEXAMETHASONE
     Route: 065
  4. CYCLOPHOSPHAMIDE [Suspect]
     Active Substance: CYCLOPHOSPHAMIDE
     Indication: Follicular lymphoma
     Dosage: 6 CYCLES OF R-CHOP
     Route: 065
  5. CARBOPLATIN [Suspect]
     Active Substance: CARBOPLATIN
     Indication: Follicular lymphoma stage I
     Dosage: 2 CYCLES, 70 MG/M2
     Route: 065
  6. CARBOPLATIN [Suspect]
     Active Substance: CARBOPLATIN
     Indication: Follicular lymphoma
     Dosage: GDP SALVAGE REGIMEN
     Route: 065
  7. DEXAMETHASONE [Suspect]
     Active Substance: DEXAMETHASONE
     Indication: Follicular lymphoma
     Dosage: DHAP REGIMEN
     Route: 065
  8. DEXAMETHASONE [Suspect]
     Active Substance: DEXAMETHASONE
     Dosage: GDP SALVAGE REGIMEN
     Route: 065
  9. DOXORUBICIN [Suspect]
     Active Substance: DOXORUBICIN
     Indication: Follicular lymphoma
     Dosage: ICE CHEMOTHERAPY; RESCUE TREATMENT
     Route: 065
  10. ETOPOSIDE [Suspect]
     Active Substance: ETOPOSIDE
     Indication: Follicular lymphoma
     Dosage: 20 MG ORALLY ONCE DAILY 1 .-21. DAY OF A 28-DAY CYCLE
     Route: 048
  11. FLUDARABINE [Suspect]
     Active Substance: FLUDARABINE PHOSPHATE
     Indication: Follicular lymphoma
     Dosage: 6 CYCLES OF R-CHOP
     Route: 065
  12. GEMCITABINE [Suspect]
     Active Substance: GEMCITABINE
     Indication: Follicular lymphoma
     Dosage: GDP SALVAGE REGIMEN
     Route: 065
  13. IFOSFAMIDE [Suspect]
     Active Substance: IFOSFAMIDE
     Indication: Follicular lymphoma
     Dosage: ICE CHEMOTHERAPY; RESCUE TREATMENT
     Route: 065
  14. LENALIDOMIDE [Suspect]
     Active Substance: LENALIDOMIDE
     Indication: Follicular lymphoma
     Dosage: THREE CYCLES OF FND (FLUDARABINE, MITOXANTRONE, DEXAMETHASONE)
     Route: 065
  15. MITOXANTRONE [Suspect]
     Active Substance: MITOXANTRONE HYDROCHLORIDE
     Indication: Follicular lymphoma
     Dosage: 6 CYCLES OF R-CHOP
     Route: 065
  16. PREDNISONE [Suspect]
     Active Substance: PREDNISONE
     Indication: Follicular lymphoma
     Dosage: THREE CYCLES OF FND (FLUDARABINE, MITOXANTRONE, DEXAMETHASONE)
     Route: 065
  17. RITUXIMAB [Suspect]
     Active Substance: RITUXIMAB
     Dosage: DHAP REGIMEN
     Route: 065
  18. RITUXIMAB [Suspect]
     Active Substance: RITUXIMAB
     Dosage: GDP SALVAGE REGIMEN
     Route: 065
  19. RITUXIMAB [Suspect]
     Active Substance: RITUXIMAB
     Dosage: FOUR MORE CYCLES OF ETOPOSIDE WITH DEXAMETHASONE
     Route: 065
  20. RITUXIMAB [Suspect]
     Active Substance: RITUXIMAB
     Indication: Follicular lymphoma
     Dosage: THREE CYCLES OF FND (FLUDARABINE, MITOXANTRONE, DEXAMETHASONE)
     Route: 065
  21. VINCRISTINE [Suspect]
     Active Substance: VINCRISTINE
     Indication: Follicular lymphoma
     Dosage: R2 TREATMENT; 375 MG/M2 INTRAVENOUSLY EVERY WEEK IN CYCLE 1 (DAYS 1, 8, 15 AND 22) AND DAY 1 OF EACH
     Route: 065
  22. VINCRISTINE [Suspect]
     Active Substance: VINCRISTINE
     Dosage: MAINTENANCE TREATMENT OF RITUXIMAB ADMINISTERED ONCE EVERY 2 MONTHS
     Route: 065
  23. VINCRISTINE [Suspect]
     Active Substance: VINCRISTINE
     Dosage: 6 CYCLES OF R-CHOP (RITUXIMAB, CYCLOPHOSPHAMIDE, DOXORUBICIN, VINCRISTINE, PREDNISONE)
     Route: 065
  24. VINCRISTINE [Suspect]
     Active Substance: VINCRISTINE
     Dosage: MONOTHERAPY
     Route: 065

REACTIONS (5)
  - Febrile neutropenia [Recovered/Resolved]
  - Herpes zoster [Recovered/Resolved]
  - Myelodysplastic syndrome [Recovered/Resolved with Sequelae]
  - Disease progression [Unknown]
  - Therapy non-responder [Unknown]
